FAERS Safety Report 10288631 (Version 2)
Quarter: 2015Q3

REPORT INFORMATION
  Report Type: Spontaneous
  Country: US (occurrence: US)
  Receive Date: 20140709
  Receipt Date: 20150814
  Transmission Date: 20151125
  Serious: No
  Sender: FDA-Public Use
  Company Number: US-GILEAD-2013-0083321

PATIENT
  Age: 42 Year
  Sex: Female

DRUGS (2)
  1. LETAIRIS [Suspect]
     Active Substance: AMBRISENTAN
     Indication: PRODUCT USED FOR UNKNOWN INDICATION
     Dosage: 10 MG, QD
     Route: 048
     Dates: start: 20120320
  2. TYVASO [Concomitant]
     Active Substance: TREPROSTINIL

REACTIONS (4)
  - Heart rate increased [Unknown]
  - Flushing [Unknown]
  - Dizziness [Unknown]
  - Accidental overdose [Unknown]

NARRATIVE: CASE EVENT DATE: 20130910
